FAERS Safety Report 9286641 (Version 1)
Quarter: 2013Q2

REPORT INFORMATION
  Report Type: Spontaneous
  Country: US (occurrence: US)
  Receive Date: 20130513
  Receipt Date: 20130513
  Transmission Date: 20140414
  Serious: Yes (Other)
  Sender: FDA-Public Use
  Company Number: US-ASTRAZENECA-2013SE31453

PATIENT
  Age: 71 Year
  Sex: Female
  Weight: 74.8 kg

DRUGS (12)
  1. NEXIUM [Suspect]
     Indication: GASTROOESOPHAGEAL REFLUX DISEASE
     Route: 048
     Dates: start: 2001, end: 2011
  2. NEXIUM [Suspect]
     Indication: GASTROOESOPHAGEAL REFLUX DISEASE
     Route: 048
     Dates: start: 2011
  3. ACYCLOVIR [Concomitant]
     Route: 048
  4. VIT D [Concomitant]
     Indication: SUPPLEMENTATION THERAPY
     Dosage: 1000 U DAILY
     Route: 048
  5. CELEXA [Concomitant]
     Indication: ANTIDEPRESSANT THERAPY
     Route: 048
  6. PLAVIX [Concomitant]
     Indication: ANTIPLATELET THERAPY
     Route: 048
  7. DOXEPIN [Concomitant]
     Indication: ANTIDEPRESSANT THERAPY
     Route: 048
  8. CRANBERRY [Concomitant]
     Indication: SUPPLEMENTATION THERAPY
     Dosage: UNK DAILY
     Route: 048
  9. XANAX [Concomitant]
     Indication: ANXIETY
     Route: 048
  10. FIBERCON [Concomitant]
     Indication: ABDOMINAL DISCOMFORT
     Dosage: UNK UNK
     Route: 048
  11. NITRO [Concomitant]
     Indication: ANGINA PECTORIS
     Dosage: UNK UNK
     Route: 048
  12. LOMOTIL [Concomitant]
     Indication: ABDOMINAL DISCOMFORT
     Dosage: UNK BID
     Route: 048

REACTIONS (4)
  - Nerve injury [Not Recovered/Not Resolved]
  - Choking [Not Recovered/Not Resolved]
  - Dyspnoea [Not Recovered/Not Resolved]
  - Dysphonia [Unknown]
